FAERS Safety Report 8785790 (Version 1)
Quarter: 2012Q4

REPORT INFORMATION
  Report Type: 
  Country: BR (occurrence: BR)
  Receive Date: 20120914
  Receipt Date: 20120914
  Transmission Date: 20130627
  Serious: Yes (Other)
  Sender: FDA-Public Use
  Company Number: BR-AMGEN-BRASP2012056850

PATIENT
  Age: 75 Year
  Sex: Female
  Weight: 55 kg

DRUGS (5)
  1. ENBREL [Suspect]
     Indication: RHEUMATOID ARTHRITIS
     Dosage: 50 mg, weekly
     Route: 058
     Dates: start: 201202, end: 20120815
  2. ARAVA [Concomitant]
     Dosage: UNK
  3. CHLORTHALIDONE [Concomitant]
     Indication: HYPERTENSION
     Dosage: 25 mg, UNK
  4. CONCOR [Concomitant]
     Indication: PULSE ABNORMAL
     Dosage: 5 mg, UNK
  5. ROSUVASTATIN [Concomitant]
     Indication: BLOOD CHOLESTEROL ABNORMAL
     Dosage: 20 mg, UNK

REACTIONS (1)
  - Goitre [Unknown]
